FAERS Safety Report 4851052-6 (Version None)
Quarter: 2005Q4

REPORT INFORMATION
  Report Type: 
  Country: None (occurrence: None)
  Receive Date: 20051212
  Receipt Date: 20051128
  Transmission Date: 20060501
  Serious: Yes (Hospitalization)
  Sender: FDA-Public Use
  Company Number: PT-JNJFOC-20051201946

PATIENT
  Sex: Female

DRUGS (4)
  1. TRAMAL RETARD [Suspect]
     Indication: BONE PAIN
     Route: 048
  2. PERINDOPRIL [Concomitant]
     Route: 065
  3. TERT-BUTILAMINA [Concomitant]
     Route: 065
  4. ATORVASTATIN CALCIUM [Concomitant]
     Route: 065

REACTIONS (4)
  - DIZZINESS [None]
  - HEADACHE [None]
  - STOMACH DISCOMFORT [None]
  - VOMITING [None]
